FAERS Safety Report 8021233-1 (Version None)
Quarter: 2011Q4

REPORT INFORMATION
  Report Type: 
  Country: None (occurrence: None)
  Receive Date: 20111229
  Receipt Date: 20111209
  Transmission Date: 20120403
  Serious: Yes (Hospitalization)
  Sender: FDA-Public Use
  Company Number: 2011PROUSA00863

PATIENT
  Age: 86 Year
  Sex: Male
  Weight: 79.8 kg

DRUGS (10)
  1. PLENDIL [Concomitant]
  2. ALTACE [Concomitant]
  3. VYTORIN [Concomitant]
  4. ASPIRIN [Concomitant]
  5. METFORMIN HCL [Concomitant]
  6. DENOSUMAB (DENOSUMAB) [Concomitant]
  7. PROVENGE [Suspect]
     Indication: PROSTATE CANCER METASTATIC
     Dosage: 250 ML, SINGLE, INTRAVENOUS
     Route: 042
     Dates: start: 20111205, end: 20111205
  8. PROVENGE [Suspect]
     Indication: PROSTATE CANCER METASTATIC
     Dosage: 250 ML, SINGLE, INTRAVENOUS
     Route: 042
     Dates: start: 20111121, end: 20111121
  9. METOPROLOL TARTRATE [Concomitant]
  10. NITROQUICK (GLYCERYL TRINITRATE) [Concomitant]

REACTIONS (4)
  - MYOCARDIAL INFARCTION [None]
  - INFLUENZA LIKE ILLNESS [None]
  - HYPOTENSION [None]
  - PULMONARY OEDEMA [None]
